FAERS Safety Report 14235818 (Version 1)
Quarter: 2017Q4

REPORT INFORMATION
  Report Type: Spontaneous
  Country: CH (occurrence: CH)
  Receive Date: 20171129
  Receipt Date: 20171129
  Transmission Date: 20180321
  Serious: Yes (Other)
  Sender: FDA-Public Use
  Company Number: CH-GLAXOSMITHKLINE-CH2017178181

PATIENT
  Age: 30 Year
  Sex: Female

DRUGS (5)
  1. KLACID [Concomitant]
     Active Substance: CLARITHROMYCIN
     Indication: PRODUCT USED FOR UNKNOWN INDICATION
     Dosage: 500 MG, BID
     Route: 048
     Dates: start: 20170918, end: 20170924
  2. ZINAT [Suspect]
     Active Substance: CEFUROXIME AXETIL
     Indication: BACTERIAL PYELONEPHRITIS
     Dosage: 500 MG, BID
     Route: 048
     Dates: start: 20171013, end: 20171022
  3. IOBITRIDOL [Suspect]
     Active Substance: IOBITRIDOL
     Indication: BACTERIAL PYELONEPHRITIS
     Dosage: 30 G, UNK
     Route: 040
     Dates: start: 20171013, end: 20171013
  4. AMOXICILLIN. [Concomitant]
     Active Substance: AMOXICILLIN
     Indication: PRODUCT USED FOR UNKNOWN INDICATION
     Dosage: 750 MG, TID
     Route: 048
     Dates: start: 20170914, end: 20170924
  5. CIPROXINE [Suspect]
     Active Substance: CIPROFLOXACIN
     Indication: BACTERIAL PYELONEPHRITIS
     Dosage: 500 MG, BID
     Route: 048
     Dates: start: 20171013, end: 20171016

REACTIONS (1)
  - Exposure during pregnancy [Unknown]

NARRATIVE: CASE EVENT DATE: 20171013
